FAERS Safety Report 25216018 (Version 1)
Quarter: 2025Q2

REPORT INFORMATION
  Report Type: Spontaneous
  Country: US (occurrence: US)
  Receive Date: 20250418
  Receipt Date: 20250418
  Transmission Date: 20250716
  Serious: No
  Sender: ROCHE
  Company Number: US-ROCHE-10000257072

PATIENT
  Age: 48 Year
  Sex: Female

DRUGS (2)
  1. OCREVUS ZUNOVO [Suspect]
     Active Substance: HYALURONIDASE-OCSQ\OCRELIZUMAB
     Indication: Relapsing-remitting multiple sclerosis
     Route: 058
  2. OCREVUS [Suspect]
     Active Substance: OCRELIZUMAB
     Indication: Product used for unknown indication
     Route: 065
     Dates: start: 201911

REACTIONS (1)
  - Lacrimation increased [Recovering/Resolving]

NARRATIVE: CASE EVENT DATE: 20250410
